FAERS Safety Report 7273049-1 (Version None)
Quarter: 2010Q4

REPORT INFORMATION
  Report Type: 
  Country: None (occurrence: None)
  Receive Date: 20101201
  Receipt Date: 20100617
  Transmission Date: 20110411
  Serious: Yes (Hospitalization)
  Sender: FDA-Public Use
  Company Number: 305955

PATIENT
  Age: 58 Year
  Sex: Female
  Weight: 142 kg

DRUGS (7)
  1. NOVOLOG [Suspect]
     Indication: TYPE 1 DIABETES MELLITUS
     Dosage: 80 IU, IV DRIP, INTRAVENOUS
     Route: 041
     Dates: start: 20100316, end: 20100316
  2. NOVOLOG [Concomitant]
  3. LEVEMIR FLEXPEN (INSULIN ASPART) [Concomitant]
  4. MAVIK [Concomitant]
  5. CLARITIN /00413701/ (GLICLAZIDE) [Concomitant]
  6. ALBUTEROL [Concomitant]
  7. CRESTOR [Concomitant]

REACTIONS (3)
  - HYPOGLYCAEMIA [None]
  - INCORRECT DOSE ADMINISTERED [None]
  - OVERDOSE [None]
